FAERS Safety Report 5211205-4 (Version None)
Quarter: 2006Q4

REPORT INFORMATION
  Report Type: 
  Country: None (occurrence: None)
  Receive Date: 20061114
  Receipt Date: 20060907
  Transmission Date: 20070319
  Serious: No
  Sender: FDA-Public Use
  Company Number: S06-USA-03625-01

PATIENT
  Age: 73 Year
  Sex: Female

DRUGS (8)
  1. NAMENDA [Suspect]
     Indication: DISTURBANCE IN ATTENTION
     Dosage: 5 MG QD PO
     Route: 048
     Dates: start: 20060829, end: 20060904
  2. NAMENDA [Suspect]
     Indication: DISTURBANCE IN ATTENTION
     Dosage: 5 MG BID PO
     Route: 048
     Dates: start: 20060905
  3. DURAGESIC-100 [Concomitant]
  4. NEURONTIN [Concomitant]
  5. AMARYL [Concomitant]
  6. PROZAC [Concomitant]
  7. QUININE [Concomitant]
  8. LUNESTA (ESZOPILCONE) [Concomitant]

REACTIONS (2)
  - ABASIA [None]
  - TREMOR [None]
